FAERS Safety Report 12474301 (Version 1)
Quarter: 2016Q2

REPORT INFORMATION
  Report Type: Spontaneous
  Country: US (occurrence: None)
  Receive Date: 20160616
  Receipt Date: 20160616
  Transmission Date: 20160815
  Serious: Yes (Death, Disabling)
  Sender: FDA-Public Use
  Company Number: None

PATIENT
  Age: 90 Year
  Sex: Female
  Weight: 72.58 kg

DRUGS (1)
  1. SEROQUEL [Suspect]
     Active Substance: QUETIAPINE FUMARATE
     Indication: EMOTIONAL DISORDER
     Dosage: 50MG 2 A DAY   2 DAILY

REACTIONS (2)
  - Aphasia [None]
  - Tardive dyskinesia [None]

NARRATIVE: CASE EVENT DATE: 2007
